FAERS Safety Report 9266567 (Version 1)
Quarter: 2013Q2

REPORT INFORMATION
  Report Type: Spontaneous
  Country: GR (occurrence: GR)
  Receive Date: 20130502
  Receipt Date: 20130502
  Transmission Date: 20140414
  Serious: Yes (Other)
  Sender: FDA-Public Use
  Company Number: PHHY2013GR041613

PATIENT
  Sex: 0

DRUGS (2)
  1. OCTREOTIDE [Suspect]
     Indication: DIABETIC RETINOPATHY
     Dosage: 45 MG, DAILY IN THREE DOSES FOR 4 WEEKS
     Route: 058
  2. INSULIN [Concomitant]
     Indication: TYPE 1 DIABETES MELLITUS
     Dosage: 48.3 U, UNK

REACTIONS (2)
  - Diabetic retinopathy [Unknown]
  - Condition aggravated [Unknown]
